FAERS Safety Report 7235019-9 (Version None)
Quarter: 2011Q1

REPORT INFORMATION
  Report Type: 
  Country: None (occurrence: None)
  Receive Date: 20110120
  Receipt Date: 20110111
  Transmission Date: 20110831
  Serious: Yes (Other)
  Sender: FDA-Public Use
  Company Number: DE-JNJFOC-20110104543

PATIENT
  Age: 17 Year
  Sex: Female

DRUGS (5)
  1. TOPIRAMATE [Suspect]
     Indication: MIGRAINE PROPHYLAXIS
     Route: 048
  2. TOPIRAMATE [Suspect]
     Route: 048
  3. TOPIRAMATE [Suspect]
     Route: 048
  4. TOPIRAMATE [Suspect]
     Route: 048
  5. TOPIRAMATE [Suspect]
     Dosage: AT NIGHT
     Route: 048

REACTIONS (7)
  - AGGRESSION [None]
  - ALOPECIA [None]
  - MOOD SWINGS [None]
  - DEPRESSION [None]
  - ALICE IN WONDERLAND SYNDROME [None]
  - PARAESTHESIA [None]
  - PARAESTHESIA ORAL [None]
